FAERS Safety Report 7490214-9 (Version None)
Quarter: 2011Q2

REPORT INFORMATION
  Report Type: 
  Country: None (occurrence: None)
  Receive Date: 20110512
  Receipt Date: 20110218
  Transmission Date: 20111010
  Serious: Yes (Hospitalization, Other)
  Sender: FDA-Public Use
  Company Number: HU-022175

PATIENT
  Age: 76 Year
  Sex: Male
  Weight: 71 kg

DRUGS (1)
  1. (CHLORAMBUCIL) [Suspect]
     Indication: CHRONIC LYMPHOCYTIC LEUKAEMIA
     Dosage: 56MG CYCLIC
     Dates: start: 20101026, end: 20110228

REACTIONS (6)
  - HAEMOGLOBIN DECREASED [None]
  - FEBRILE NEUTROPENIA [None]
  - HAEMATOCRIT DECREASED [None]
  - BRONCHOPNEUMONIA [None]
  - VENTRICULAR TACHYCARDIA [None]
  - PLATELET COUNT DECREASED [None]
